FAERS Safety Report 9084073 (Version 1)
Quarter: 2013Q1

REPORT INFORMATION
  Report Type: Spontaneous
  Country: US (occurrence: US)
  Receive Date: 20130131
  Receipt Date: 20130131
  Transmission Date: 20140127
  Serious: No
  Sender: FDA-Public Use
  Company Number: US-PFIZER INC-2013033047

PATIENT
  Sex: Male

DRUGS (1)
  1. ADVIL [Suspect]
     Dosage: UNK

REACTIONS (2)
  - Dyspnoea [Unknown]
  - Sputum increased [Unknown]
